FAERS Safety Report 9574730 (Version 1)
Quarter: 2013Q4

REPORT INFORMATION
  Report Type: Spontaneous
  Country: US (occurrence: US)
  Receive Date: 20131001
  Receipt Date: 20131001
  Transmission Date: 20140711
  Serious: No
  Sender: FDA-Public Use
  Company Number: US-BAYER-2013-117588

PATIENT
  Age: 61 Year
  Sex: Male

DRUGS (3)
  1. LEVITRA [Suspect]
     Indication: ERECTILE DYSFUNCTION
     Dosage: 20 MG, UNK
     Route: 048
  2. SYNTHROID [Concomitant]
     Dosage: 175 MCG/24HR, UNK
  3. HYDROCHLOROTHIAZIDE W/VALSARTAN [Concomitant]
     Dosage: 320-25 MG ONCE DAILY

REACTIONS (1)
  - Drug ineffective [None]
